FAERS Safety Report 6159958-5 (Version None)
Quarter: 2009Q2

REPORT INFORMATION
  Report Type: 
  Country: None (occurrence: None)
  Receive Date: 20090420
  Receipt Date: 20090407
  Transmission Date: 20091009
  Serious: Yes (Congenital Anomaly, Other)
  Sender: FDA-Public Use
  Company Number: US-ROCHE-622531

PATIENT
  Sex: Male
  Weight: 3.4 kg

DRUGS (5)
  1. RIBAVIRIN [Suspect]
     Indication: HEPATITIS C
     Route: 064
     Dates: start: 20070501, end: 20071001
  2. PEG-INTERFERON ALFA NOS [Suspect]
     Indication: HEPATITIS C
     Route: 064
     Dates: start: 20070501, end: 20071001
  3. IRON SUPPLEMENT [Concomitant]
  4. VITAMIN TAB [Concomitant]
  5. FOLIC ACID [Concomitant]

REACTIONS (6)
  - MATERNAL DRUGS AFFECTING FOETUS [None]
  - PULMONARY HYPERTENSION [None]
  - RESPIRATORY DISORDER [None]
  - RESPIRATORY TRACT MALFORMATION [None]
  - TRISOMY 21 [None]
  - VENTRICULAR SEPTAL DEFECT [None]
